FAERS Safety Report 22712552 (Version 3)
Quarter: 2024Q1

REPORT INFORMATION
  Report Type: Spontaneous
  Country: US (occurrence: US)
  Receive Date: 20230717
  Receipt Date: 20240212
  Transmission Date: 20240409
  Serious: Yes (Other)
  Sender: FDA-Public Use
  Company Number: US-BIOMARINAP-US-2023-151539

PATIENT

DRUGS (1)
  1. VOXZOGO [Suspect]
     Active Substance: VOSORITIDE
     Indication: Osteochondrodysplasia
     Dosage: 1.2 UNK, QD
     Route: 058
     Dates: start: 20220212

REACTIONS (5)
  - Knee operation [Unknown]
  - Medical device implantation [Unknown]
  - Ear tube insertion [Unknown]
  - Ear tube removal [Unknown]
  - Ear discomfort [Unknown]
